FAERS Safety Report 23028462 (Version 2)
Quarter: 2023Q4

REPORT INFORMATION
  Report Type: Report from Study
  Country: US (occurrence: US)
  Receive Date: 20231004
  Receipt Date: 20231027
  Transmission Date: 20240109
  Serious: Yes (Hospitalization)
  Sender: FDA-Public Use
  Company Number: US-JNJFOC-20230919652

PATIENT
  Age: 76 Year
  Sex: Female
  Weight: 102.7 kg

DRUGS (3)
  1. EPOPROSTENOL SODIUM [Suspect]
     Active Substance: EPOPROSTENOL SODIUM
     Indication: Pulmonary arterial hypertension
     Route: 042
     Dates: start: 201810
  2. LETAIRIS [Concomitant]
     Active Substance: AMBRISENTAN
     Indication: Pulmonary arterial hypertension
     Route: 048
     Dates: start: 201811
  3. WARFARIN [Concomitant]
     Active Substance: WARFARIN

REACTIONS (5)
  - Device alarm issue [Recovered/Resolved]
  - Dyspnoea [Recovered/Resolved]
  - Device occlusion [Unknown]
  - Hypoxia [Unknown]
  - Underdose [Unknown]

NARRATIVE: CASE EVENT DATE: 20230907
